FAERS Safety Report 6940492-7 (Version None)
Quarter: 2010Q3

REPORT INFORMATION
  Report Type: 
  Country: None (occurrence: None)
  Receive Date: 20100825
  Receipt Date: 20100818
  Transmission Date: 20110219
  Serious: Yes (Disabling)
  Sender: FDA-Public Use
  Company Number: NZ-NAPPMUNDI-USA-2010-0045753

PATIENT
  Sex: Male
  Weight: 114.4 kg

DRUGS (18)
  1. BLINDED BTDS PATCH [Suspect]
     Indication: DIABETIC NEUROPATHY
     Dosage: 20 MCG, Q1H
     Route: 062
     Dates: start: 20100809, end: 20100817
  2. BLINDED PLACEBO TRANSDERMAL PATCH [Suspect]
     Indication: DIABETIC NEUROPATHY
     Dosage: 20 MCG, Q1H
     Route: 062
     Dates: start: 20100809, end: 20100817
  3. BLINDED BTDS PATCH [Suspect]
     Dosage: UNK
  4. BLINDED PLACEBO TRANSDERMAL PATCH [Suspect]
     Dosage: UNK
  5. METOPROLOL [Concomitant]
     Indication: PRODUCT USED FOR UNKNOWN INDICATION
     Dosage: UNK
     Dates: start: 20100709, end: 20100817
  6. ASPIRIN [Concomitant]
     Dosage: UNK
     Dates: start: 20100622
  7. PROTAPHANE                         /00030513/ [Concomitant]
     Dosage: UNK
     Dates: start: 20100101
  8. NOVORAPID [Concomitant]
     Dosage: UNK
     Dates: start: 20100101
  9. METFORMIN [Concomitant]
     Dosage: UNK
     Dates: start: 20100611
  10. OMEPRAZOLE [Concomitant]
     Dosage: UNK
     Dates: start: 20100627
  11. BEZAFIBRATE [Concomitant]
     Dosage: UNK
     Dates: start: 20100810
  12. FRUSEMIDE                          /00032601/ [Concomitant]
     Dosage: UNK
     Dates: start: 20100629
  13. AMITRIPTYLINE HCL [Concomitant]
     Dosage: UNK
     Dates: start: 20100329
  14. CILAZAPRIL [Concomitant]
     Dosage: UNK
     Dates: start: 20100601
  15. NITROGLYCERIN [Concomitant]
     Dosage: UNK
     Dates: start: 20100809
  16. CLOPIDOGREL [Concomitant]
     Dosage: UNK
     Dates: start: 20100809
  17. SIMVASTATIN [Concomitant]
     Dosage: UNK
     Dates: start: 20100709
  18. DILTIAZEM CD [Concomitant]
     Dosage: 120 MG, DAILY
     Dates: start: 20100818

REACTIONS (3)
  - ANXIETY [None]
  - DEPRESSION [None]
  - SUICIDAL IDEATION [None]
